FAERS Safety Report 4308999-9 (Version None)
Quarter: 2004Q1

REPORT INFORMATION
  Report Type: 
  Country: None (occurrence: None)
  Receive Date: 20040227
  Receipt Date: 20040211
  Transmission Date: 20041129
  Serious: Yes (Death)
  Sender: FDA-Public Use
  Company Number: 2004SE00729

PATIENT
  Age: 59 Year
  Sex: Male

DRUGS (4)
  1. SEROQUEL [Suspect]
     Indication: PSYCHOTIC DISORDER
     Dosage: 300 MG DAILY PO
     Route: 048
     Dates: start: 20031219
  2. ZOLOFT [Suspect]
     Dosage: 50 MG DAILY
     Dates: start: 20040127
  3. TEMAZEPANUM [Concomitant]
  4. RANITIDINUM [Concomitant]

REACTIONS (2)
  - NEUROLEPTIC MALIGNANT SYNDROME [None]
  - SEROTONIN SYNDROME [None]
